FAERS Safety Report 5127574-X (Version None)
Quarter: 2006Q4

REPORT INFORMATION
  Report Type: 
  Country: None (occurrence: None)
  Receive Date: 20061016
  Receipt Date: 20061004
  Transmission Date: 20070319
  Serious: Yes (Hospitalization)
  Sender: FDA-Public Use
  Company Number: BE-JNJFOC-20060802513

PATIENT
  Age: 50 Year
  Sex: Female

DRUGS (11)
  1. REMICADE [Suspect]
     Indication: RHEUMATOID ARTHRITIS
     Route: 042
  2. PREDNISOLONE [Concomitant]
     Indication: RHEUMATOID ARTHRITIS
     Route: 065
  3. LEDERTREXATE [Concomitant]
     Indication: RHEUMATOID ARTHRITIS
     Route: 065
  4. MESULID [Concomitant]
     Route: 065
  5. CONTRAMAL [Concomitant]
     Route: 065
  6. OMEPRAZOLE [Concomitant]
     Route: 065
  7. XANAX [Concomitant]
     Route: 065
  8. FOLIC ACID [Concomitant]
     Route: 065
  9. REDOMEX [Concomitant]
     Route: 065
  10. CALCAREOUS CARBONATE [Concomitant]
     Route: 065
  11. DAFALGAN [Concomitant]
     Route: 065

REACTIONS (3)
  - DYSPNOEA EXERTIONAL [None]
  - GOITRE [None]
  - INVESTIGATION [None]
